FAERS Safety Report 11427475 (Version 1)
Quarter: 2015Q3

REPORT INFORMATION
  Report Type: Spontaneous
  Country: US (occurrence: US)
  Receive Date: 20150827
  Receipt Date: 20150827
  Transmission Date: 20151125
  Serious: No
  Sender: FDA-Public Use
  Company Number: US-SA-2015SA017914

PATIENT
  Age: 43 Year
  Sex: Female

DRUGS (6)
  1. NORMAL SALINE [Concomitant]
     Active Substance: SODIUM CHLORIDE
     Dosage: ALSO RECEIVED ON 6-JAN-2015
     Dates: start: 20150206
  2. FABRAZYME [Suspect]
     Active Substance: AGALSIDASE BETA
     Route: 041
     Dates: end: 20150206
  3. HEPARIN [Concomitant]
     Active Substance: HEPARIN SODIUM
     Dosage: 3 ML/330 UNITS
     Dates: start: 20150206
  4. ACETAMINOPHEN. [Concomitant]
     Active Substance: ACETAMINOPHEN
     Route: 048
     Dates: start: 20150206
  5. PREDNISONE. [Concomitant]
     Active Substance: PREDNISONE
     Dates: start: 20150206
  6. BENADRYL [Concomitant]
     Active Substance: DIPHENHYDRAMINE HYDROCHLORIDE
     Dosage: ALSO RECEIVED ON 06-JAN-2015
     Route: 042
     Dates: start: 20150206

REACTIONS (7)
  - Dysphagia [Recovered/Resolved]
  - Pharyngeal disorder [Recovered/Resolved]
  - Hypotension [Recovered/Resolved]
  - Dyspnoea [Recovered/Resolved]
  - Tongue disorder [Recovered/Resolved]
  - Palpitations [Recovered/Resolved]
  - Chest pain [Recovered/Resolved]

NARRATIVE: CASE EVENT DATE: 20150206
